FAERS Safety Report 6978949-5 (Version None)
Quarter: 2010Q3

REPORT INFORMATION
  Report Type: 
  Country: None (occurrence: None)
  Receive Date: 20100913
  Receipt Date: 20100902
  Transmission Date: 20110219
  Serious: Yes (Disabling)
  Sender: FDA-Public Use
  Company Number: CA-MERCK-1009USA00331

PATIENT
  Age: 61 Year
  Sex: Female
  Weight: 62 kg

DRUGS (11)
  1. ZETIA [Suspect]
     Route: 048
  2. APO FUROSEMIDE [Concomitant]
     Route: 048
  3. TRIMIPRAMINE [Concomitant]
     Route: 048
  4. ASAPHEN [Concomitant]
     Route: 048
  5. LITHIUM CARBONATE [Concomitant]
     Route: 065
  6. DESYREL [Concomitant]
     Route: 048
  7. DIAMICRON MR [Concomitant]
     Route: 048
  8. ESTRACE [Concomitant]
     Route: 048
  9. ALPRAZOLAM [Concomitant]
     Route: 048
  10. NOVO-MEDRONE [Concomitant]
     Route: 048
  11. PREMARIN [Concomitant]
     Route: 065

REACTIONS (6)
  - DIZZINESS [None]
  - FATIGUE [None]
  - HEADACHE [None]
  - MUSCULAR WEAKNESS [None]
  - NYSTAGMUS [None]
  - PAIN IN EXTREMITY [None]
